FAERS Safety Report 9353158 (Version 1)
Quarter: 2013Q2

REPORT INFORMATION
  Report Type: Spontaneous
  Country: US (occurrence: None)
  Receive Date: 20130617
  Receipt Date: 20130617
  Transmission Date: 20140414
  Serious: Yes (Other)
  Sender: FDA-Public Use
  Company Number: None

PATIENT
  Age: 84 Year
  Sex: Female
  Weight: 48.99 kg

DRUGS (1)
  1. CEPHALEXIN [Suspect]

REACTIONS (3)
  - Rash generalised [None]
  - Pruritus generalised [None]
  - Drug eruption [None]
